FAERS Safety Report 7150165-6 (Version None)
Quarter: 2010Q4

REPORT INFORMATION
  Report Type: 
  Country: None (occurrence: None)
  Receive Date: 20101207
  Receipt Date: 20101207
  Transmission Date: 20110411
  Serious: Yes (Life-Threatening, Hospitalization)
  Sender: FDA-Public Use
  Company Number: None

PATIENT
  Age: 50 Year
  Sex: Female

DRUGS (2)
  1. HEPARIN SODIUM [Suspect]
     Indication: ANTICOAGULANT THERAPY
     Dosage: VARIABLE DOSING CONTINUOUS IV DRIP
     Route: 041
     Dates: start: 20101031, end: 20101118
  2. HEPARIN SODIUM [Suspect]
     Indication: CARDIAC VALVE PROSTHESIS USER
     Dosage: VARIABLE DOSING CONTINUOUS IV DRIP
     Route: 041
     Dates: start: 20101031, end: 20101118

REACTIONS (1)
  - SUBDURAL HAEMATOMA [None]
